FAERS Safety Report 9922082 (Version 1)
Quarter: 2014Q1

REPORT INFORMATION
  Report Type: Spontaneous
  Country: US (occurrence: US)
  Receive Date: 20140225
  Receipt Date: 20140225
  Transmission Date: 20141002
  Serious: Yes (Hospitalization)
  Sender: FDA-Public Use
  Company Number: US-JNJFOC-20140212536

PATIENT
  Age: 73 Year
  Sex: Female

DRUGS (9)
  1. REMICADE [Suspect]
     Indication: CROHN^S DISEASE
     Route: 042
     Dates: start: 20140129
  2. REMICADE [Suspect]
     Indication: CROHN^S DISEASE
     Route: 042
     Dates: start: 20140114
  3. DILTIAZEM [Concomitant]
     Route: 065
  4. LIALDA [Concomitant]
     Route: 065
  5. PREDNISONE [Concomitant]
     Route: 065
  6. LASIX [Concomitant]
     Route: 065
  7. POTASSIUM [Concomitant]
     Route: 065
  8. ADVAIR [Concomitant]
     Route: 065
  9. ALBUTEROL [Concomitant]
     Dosage: PM
     Route: 065

REACTIONS (2)
  - Vaginal discharge [Unknown]
  - Gastrointestinal disorder [Unknown]
